FAERS Safety Report 7379284-6 (Version None)
Quarter: 2011Q1

REPORT INFORMATION
  Report Type: 
  Country: None (occurrence: None)
  Receive Date: 20110329
  Receipt Date: 20101110
  Transmission Date: 20110831
  Serious: Yes (Hospitalization, Other)
  Sender: FDA-Public Use
  Company Number: GB-AMGEN-US392592

PATIENT
  Age: 43 Year
  Sex: Male
  Weight: 117 kg

DRUGS (8)
  1. CANDESARTAN [Concomitant]
     Indication: HYPERTENSION
     Dosage: 8 MG, QD
     Route: 048
  2. METHOTREXATE [Suspect]
     Indication: PSORIASIS
     Dosage: 2.5-10MG PER WEEK
     Route: 048
     Dates: end: 20091215
  3. WARFARIN [Concomitant]
     Indication: PSORIASIS
     Dosage: UNK UNK, UNK
  4. ENBREL [Suspect]
     Indication: PSORIASIS
     Dosage: 50 MG, QWK
     Route: 058
     Dates: start: 20080515, end: 20091215
  5. LEVOTHYROXINE SODIUM [Concomitant]
     Indication: HYPOTHYROIDISM
     Dosage: 25 A?G, QD
     Route: 048
     Dates: start: 20091101
  6. TRAMADOL [Concomitant]
     Indication: ARTHRITIS
     Dosage: 100 MG, QID
     Route: 048
  7. WARFARIN [Concomitant]
     Dosage: UNKNOWN
  8. WARFARIN [Concomitant]
     Dosage: UNKNOWN

REACTIONS (5)
  - PULMONARY EMBOLISM [None]
  - LIVER FUNCTION TEST ABNORMAL [None]
  - PNEUMOTHORAX [None]
  - POST PROCEDURAL COMPLICATION [None]
  - THROMBOSIS [None]
